FAERS Safety Report 13802275 (Version 4)
Quarter: 2017Q3

REPORT INFORMATION
  Report Type: Spontaneous
  Country: JP (occurrence: JP)
  Receive Date: 20170728
  Receipt Date: 20170912
  Transmission Date: 20171127
  Serious: Yes (Death, Hospitalization)
  Sender: FDA-Public Use
  Company Number: JP-ASTELLAS-2017JP014519AA

PATIENT
  Age: 82 Year
  Sex: Female
  Weight: 40 kg

DRUGS (2)
  1. PROGRAF [Suspect]
     Active Substance: TACROLIMUS\TACROLIMUS ANHYDROUS
     Indication: RHEUMATOID ARTHRITIS
     Route: 048
     Dates: start: 20090128, end: 20150620
  2. BAKTAR [Concomitant]
     Active Substance: SULFAMETHOXAZOLE\TRIMETHOPRIM
     Indication: ANTIFUNGAL PROPHYLAXIS
     Route: 048
     Dates: start: 20090128, end: 20150620

REACTIONS (3)
  - Interstitial lung disease [Fatal]
  - Pneumonia bacterial [Fatal]
  - Intentional underdose [Unknown]

NARRATIVE: CASE EVENT DATE: 20090128
